FAERS Safety Report 9167678 (Version 1)
Quarter: 2013Q1

REPORT INFORMATION
  Report Type: Spontaneous
  Country: MX (occurrence: MX)
  Receive Date: 20130318
  Receipt Date: 20130318
  Transmission Date: 20140127
  Serious: Yes (Other)
  Sender: FDA-Public Use
  Company Number: PHHY2013MX025295

PATIENT
  Age: 43 Year
  Sex: Female

DRUGS (4)
  1. ONBREZ [Suspect]
     Indication: LUNG DISORDER
     Dosage: 150 UG, UNK
     Dates: start: 201303
  2. SERETIDE [Concomitant]
     Indication: LUNG DISORDER
     Dosage: 2 (SHOT)
     Dates: start: 1996
  3. VENTOLIN                           /00942701/ [Concomitant]
     Dosage: 1 (SHOT)
     Dates: start: 1999
  4. MONTELUKAST [Concomitant]
     Dosage: UNK
     Dates: start: 1999

REACTIONS (2)
  - Pulmonary fibrosis [Not Recovered/Not Resolved]
  - Respiratory disorder [Not Recovered/Not Resolved]
